FAERS Safety Report 6480802-0 (Version None)
Quarter: 2009Q4

REPORT INFORMATION
  Report Type: 
  Country: None (occurrence: None)
  Receive Date: 20091208
  Receipt Date: 20091201
  Transmission Date: 20100525
  Serious: No
  Sender: FDA-Public Use
  Company Number: US-B.I. PHARMACEUTICALS,INC./RIDGEFIELD-2009-BP-13995BP

PATIENT

DRUGS (3)
  1. VIRAMUNE [Suspect]
     Route: 048
  2. VIREAD [Concomitant]
  3. LAMIVUDINE [Concomitant]

REACTIONS (1)
  - HEADACHE [None]
